FAERS Safety Report 6283721-8 (Version None)
Quarter: 2009Q3

REPORT INFORMATION
  Report Type: 
  Country: None (occurrence: None)
  Receive Date: 20090724
  Receipt Date: 20090612
  Transmission Date: 20100115
  Serious: Yes (Hospitalization, Other)
  Sender: FDA-Public Use
  Company Number: US-ALEXION-A200900443

PATIENT
  Sex: Male
  Weight: 82 kg

DRUGS (8)
  1. SOLIRIS [Suspect]
     Indication: PAROXYSMAL NOCTURNAL HAEMOGLOBINURIA
     Dosage: 600 MG, UNK
     Route: 042
     Dates: start: 20071129, end: 20071219
  2. SOLIRIS [Suspect]
     Dosage: 900 MG, Q2W
     Route: 042
     Dates: start: 20071226
  3. LEVAQUIN [Concomitant]
     Route: 042
  4. FOLATE [Concomitant]
     Dosage: 1 MG, QD
     Route: 048
  5. IRON [Concomitant]
  6. VITAMIN A [Concomitant]
  7. LUMIGAN [Concomitant]
     Dosage: 1 DROP, QD
  8. FERROUS SULFATE TAB [Concomitant]
     Dosage: 325 MG, QD
     Route: 048

REACTIONS (8)
  - CONDITION AGGRAVATED [None]
  - HAEMOLYTIC ANAEMIA [None]
  - PHOTOPSIA [None]
  - PNEUMONIA [None]
  - RASH [None]
  - RENAL FAILURE ACUTE [None]
  - THROMBOCYTOPENIA [None]
  - VITREOUS HAEMORRHAGE [None]
